FAERS Safety Report 15145241 (Version 1)
Quarter: 2018Q3

REPORT INFORMATION
  Report Type: Spontaneous
  Country: FR (occurrence: FR)
  Receive Date: 20180713
  Receipt Date: 20180713
  Transmission Date: 20181010
  Serious: Yes (Other)
  Sender: FDA-Public Use
  Company Number: FR-009507513-1807FRA002538

PATIENT
  Sex: Female

DRUGS (7)
  1. CYPROTERONE ACETATE [Suspect]
     Active Substance: CYPROTERONE ACETATE
  2. MEDROGESTONE [Suspect]
     Active Substance: MEDROGESTONE
  3. NOMEGESTROL [Suspect]
     Active Substance: NOMEGESTROL
  4. ESTROGEN NOS [Suspect]
     Active Substance: ESTROGENS
     Dosage: SKIN PATCH
  5. ESTROGEN NOS [Suspect]
     Active Substance: ESTROGENS
     Dosage: TOPICA APPLICATION
     Route: 061
  6. ETONOGESTREL IMPLANT? UNKNOWN [Suspect]
     Active Substance: ETONOGESTREL
     Route: 059
  7. PROGESTERONE. [Suspect]
     Active Substance: PROGESTERONE

REACTIONS (1)
  - Meningioma benign [Unknown]
